FAERS Safety Report 8664128 (Version 6)
Quarter: 2012Q4

REPORT INFORMATION
  Report Type: 
  Country: US (occurrence: US)
  Receive Date: 20120713
  Receipt Date: 20121023
  Transmission Date: 20130627
  Serious: Yes (Other)
  Sender: FDA-Public Use
  Company Number: US-ROCHE-1084286

PATIENT
  Age: 56 Year
  Sex: Male

DRUGS (7)
  1. XOLAIR [Suspect]
     Indication: ASTHMA
     Route: 058
     Dates: start: 20120531
  2. XOLAIR [Suspect]
     Route: 058
     Dates: start: 20120614
  3. ALVESCO [Concomitant]
  4. ADVAIR [Concomitant]
  5. VENTOLIN [Concomitant]
  6. SINGULAIR [Concomitant]
  7. ZOMETA [Concomitant]

REACTIONS (22)
  - Penile oedema [Unknown]
  - Fungal infection [Unknown]
  - Pyrexia [Unknown]
  - Pain [Not Recovered/Not Resolved]
  - Dysphonia [Unknown]
  - Abdominal pain upper [Unknown]
  - Influenza like illness [Unknown]
  - Fatigue [Unknown]
  - Headache [Unknown]
  - Syncope [Unknown]
  - Dyspnoea [Unknown]
  - Loss of consciousness [Unknown]
  - Dermatitis [Unknown]
  - Cough [Unknown]
  - Respiratory arrest [Unknown]
  - Malaise [Unknown]
  - Nasopharyngitis [Unknown]
  - Insomnia [Unknown]
  - Obstructive airways disorder [Unknown]
  - Gait disturbance [Not Recovered/Not Resolved]
  - Arthralgia [Unknown]
  - Joint swelling [Unknown]
